FAERS Safety Report 4277847-8 (Version None)
Quarter: 2004Q1

REPORT INFORMATION
  Report Type: 
  Country: None (occurrence: None)
  Receive Date: 20040123
  Receipt Date: 20030508
  Transmission Date: 20041129
  Serious: Yes (Other)
  Sender: FDA-Public Use
  Company Number: PHNR2003AU00882

PATIENT
  Age: 47 Year
  Sex: Female

DRUGS (2)
  1. LAMISIL [Suspect]
     Indication: NAIL TINEA
     Dosage: 250 MG, QD
     Route: 048
     Dates: start: 20030301, end: 20030507
  2. ESTALIS SEQUI [Concomitant]
     Dosage: 50/140 UG, UNK
     Route: 062

REACTIONS (6)
  - ARTHRALGIA [None]
  - ERYTHEMA [None]
  - JOINT SWELLING [None]
  - PRURITUS [None]
  - RASH VESICULAR [None]
  - SKIN REACTION [None]
